FAERS Safety Report 12230948 (Version 1)
Quarter: 2016Q2

REPORT INFORMATION
  Report Type: Spontaneous
  Country: JP (occurrence: JP)
  Receive Date: 20160401
  Receipt Date: 20160401
  Transmission Date: 20160815
  Serious: Yes (Hospitalization, Other)
  Sender: FDA-Public Use
  Company Number: JP-SA-2016SA062988

PATIENT
  Age: 67 Year
  Sex: Male

DRUGS (8)
  1. SAMSCA [Suspect]
     Active Substance: TOLVAPTAN
     Indication: ASCITES
     Route: 048
     Dates: start: 20150903, end: 20151008
  2. SAMSCA [Suspect]
     Active Substance: TOLVAPTAN
     Indication: ASCITES
     Route: 048
     Dates: start: 20151104, end: 20151124
  3. LASIX [Suspect]
     Active Substance: FUROSEMIDE
     Route: 048
     Dates: start: 20150817, end: 20151112
  4. ALDACTONE-A [Suspect]
     Active Substance: SPIRONOLACTONE
     Route: 048
     Dates: start: 20150817, end: 20151112
  5. MONILAC [Suspect]
     Active Substance: LACTULOSE
     Dosage: DOSE: BETWEEN 40 AND 60ML
     Route: 048
     Dates: start: 20150818, end: 20151214
  6. MAGMITT [Suspect]
     Active Substance: MAGNESIUM OXIDE
     Dosage: DOSE: BETWEEN 2 AND 6 TABLETS
     Route: 048
     Dates: start: 20150827, end: 20151214
  7. SAMSCA [Suspect]
     Active Substance: TOLVAPTAN
     Indication: ASCITES
     Route: 048
     Dates: start: 20151024, end: 20151103
  8. SAMSCA [Suspect]
     Active Substance: TOLVAPTAN
     Indication: ASCITES
     Route: 048
     Dates: start: 20150818, end: 20150902

REACTIONS (1)
  - Cerebral infarction [Recovered/Resolved with Sequelae]

NARRATIVE: CASE EVENT DATE: 20151024
